FAERS Safety Report 12998272 (Version 1)
Quarter: 2016Q4

REPORT INFORMATION
  Report Type: Spontaneous
  Country: US (occurrence: US)
  Receive Date: 20161202
  Receipt Date: 20161202
  Transmission Date: 20170207
  Serious: Yes (Hospitalization)
  Sender: FDA-Public Use
  Company Number: None

PATIENT
  Age: 66 Year
  Sex: Male
  Weight: 99.3 kg

DRUGS (22)
  1. ALBUTEROL (PROVENTIL HFA) [Concomitant]
  2. SEVELAMER (RENVELA) [Concomitant]
  3. ASPIRIN. [Concomitant]
     Active Substance: ASPIRIN
  4. LAMOTRIGINE (LAMICTAL) [Concomitant]
  5. MIDAZOLAM HCL (MIDAZOLAM) [Concomitant]
  6. KEPPRA [Concomitant]
     Active Substance: LEVETIRACETAM
  7. ISENTRESS [Suspect]
     Active Substance: RALTEGRAVIR POTASSIUM
  8. B-COMPLEX-VITAMIN C-FOLIC ACID [Concomitant]
  9. OXYCODONE (OXYCONTIN) [Concomitant]
  10. LACTULOSE (CHRONULAC) [Concomitant]
  11. MIRALAX [Concomitant]
     Active Substance: POLYETHYLENE GLYCOL 3350
  12. ELBASVIR/GRAZOPREVIR [Suspect]
     Active Substance: ELBASVIR\GRAZOPREVIR
     Indication: HEPATITIS C
     Route: 048
     Dates: start: 20160609, end: 20160901
  13. LAMIVUDINE (EPIVIR-HBV) [Concomitant]
  14. PRAVACHOL [Concomitant]
     Active Substance: PRAVASTATIN SODIUM
  15. PRILOSEC [Concomitant]
     Active Substance: OMEPRAZOLE MAGNESIUM
  16. OXYCODONE-ACETAMINOPHEN (PERCOCET) [Concomitant]
  17. ABACAVIR (ZINAGEN) [Concomitant]
  18. CALCITRIOL (ROCALTROL) [Concomitant]
  19. CELEXA [Concomitant]
     Active Substance: CITALOPRAM HYDROBROMIDE
  20. LIDOCAINE (LIDODERM) [Concomitant]
  21. METOPROLOL (TOPROL-XL) [Concomitant]
  22. CLOTRIMAZOLE-BETAMETHASONE (LOTRISONE) [Concomitant]

REACTIONS (10)
  - Intervertebral discitis [None]
  - Condition aggravated [None]
  - Myalgia [None]
  - Oedema [None]
  - Bone marrow oedema [None]
  - Red blood cell sedimentation rate increased [None]
  - Gouty tophus [None]
  - Osteomyelitis [None]
  - Back pain [None]
  - Intervertebral disc degeneration [None]

NARRATIVE: CASE EVENT DATE: 20160712
